FAERS Safety Report 11457207 (Version 1)
Quarter: 2015Q3

REPORT INFORMATION
  Report Type: Spontaneous
  Country: US (occurrence: None)
  Receive Date: 20150903
  Receipt Date: 20150903
  Transmission Date: 20151125
  Serious: Yes (Other)
  Sender: FDA-Public Use
  Company Number: None

PATIENT
  Age: 18 Year
  Sex: Female
  Weight: 68.95 kg

DRUGS (3)
  1. WELLBUTRIN [Concomitant]
     Active Substance: BUPROPION HYDROCHLORIDE
  2. XULANE [Suspect]
     Active Substance: ETHINYL ESTRADIOL\NORELGESTROMIN
     Indication: AFFECTIVE DISORDER
     Dosage: 1 PATCH
     Route: 062
     Dates: start: 20150508, end: 20150724
  3. RISPERDAL [Concomitant]
     Active Substance: RISPERIDONE

REACTIONS (3)
  - Nausea [None]
  - Dizziness [None]
  - Weight decreased [None]

NARRATIVE: CASE EVENT DATE: 20150724
